FAERS Safety Report 11805807 (Version 1)
Quarter: 2015Q4

REPORT INFORMATION
  Report Type: Spontaneous
  Country: US (occurrence: None)
  Receive Date: 20151204
  Receipt Date: 20151204
  Transmission Date: 20160305
  Serious: No
  Sender: FDA-Public Use
  Company Number: None

PATIENT
  Age: 65 Year
  Sex: Female
  Weight: 71.67 kg

DRUGS (5)
  1. PICATO [Suspect]
     Active Substance: INGENOL MEBUTATE
     Indication: PRECANCEROUS CELLS PRESENT
     Dosage: TOPICAL CREME
     Route: 061
     Dates: start: 20150515, end: 20150517
  2. LUTEIN [Concomitant]
     Active Substance: LUTEIN
  3. CALCIUM [Concomitant]
     Active Substance: CALCIUM
  4. MULTI-VITAMIN [Concomitant]
     Active Substance: .ALPHA.-TOCOPHEROL ACETATE, DL-\ASCORBIC ACID\CYANOCOBALAMIN\FLUORIDE ION\FOLIC ACID\NIACIN\PYRIDOXINE\RIBOFLAVIN\THIAMINE\VITAMIN A\VITAMIN D
  5. GLUCOSMINE-CHRONDROITIN [Concomitant]

REACTIONS (5)
  - Scab [None]
  - Sinus disorder [None]
  - Eyelid oedema [None]
  - Eye swelling [None]
  - Headache [None]

NARRATIVE: CASE EVENT DATE: 20150513
